FAERS Safety Report 9428830 (Version 1)
Quarter: 2013Q3

REPORT INFORMATION
  Report Type: Report from Study
  Country: US (occurrence: US)
  Receive Date: 20130730
  Receipt Date: 20130730
  Transmission Date: 20140515
  Serious: No
  Sender: FDA-Public Use
  Company Number: US-ABBOTT-12P-163-1023546-00

PATIENT
  Age: 59 Year
  Sex: Male
  Weight: 64.92 kg

DRUGS (8)
  1. NIASPAN (COATED) [Suspect]
     Indication: BLOOD TRIGLYCERIDES INCREASED
     Dosage: (500MG) AT BEDTIME
     Route: 048
     Dates: start: 20121216
  2. OMEPRAZOLE [Concomitant]
     Indication: PRODUCT USED FOR UNKNOWN INDICATION
  3. ZETIA [Concomitant]
     Indication: PRODUCT USED FOR UNKNOWN INDICATION
  4. ASPIRIN [Concomitant]
     Indication: PRODUCT USED FOR UNKNOWN INDICATION
     Dosage: 30 MINUTES BEFORE NIASPAN
  5. ALLOPURINOL [Concomitant]
     Indication: PRODUCT USED FOR UNKNOWN INDICATION
  6. MEGA RED [Concomitant]
     Indication: PRODUCT USED FOR UNKNOWN INDICATION
  7. UNKNOWN OTC DAYTIME MEDICATION [Concomitant]
     Indication: HYPERSENSITIVITY
  8. UNKNOWN OTC DAYTIME MEDICATION [Concomitant]
     Indication: INFLUENZA

REACTIONS (2)
  - Somnolence [Recovering/Resolving]
  - Feeling hot [Recovering/Resolving]
